FAERS Safety Report 7654927-8 (Version None)
Quarter: 2011Q3

REPORT INFORMATION
  Report Type: 
  Country: None (occurrence: None)
  Receive Date: 20110804
  Receipt Date: 20110725
  Transmission Date: 20111222
  Serious: Yes (Hospitalization)
  Sender: FDA-Public Use
  Company Number: BR-US-EMD SERONO, INC.-7009254

PATIENT
  Sex: Female

DRUGS (2)
  1. REBIF [Suspect]
     Indication: RELAPSING-REMITTING MULTIPLE SCLEROSIS
     Route: 058
     Dates: start: 20060501
  2. FLUOXETINE [Concomitant]

REACTIONS (5)
  - HEADACHE [None]
  - BONE NEOPLASM [None]
  - SCOLIOSIS [None]
  - BONE EROSION [None]
  - FALL [None]
